FAERS Safety Report 5087170-X (Version None)
Quarter: 2006Q3

REPORT INFORMATION
  Report Type: 
  Country: None (occurrence: None)
  Receive Date: 20060821
  Receipt Date: 20060807
  Transmission Date: 20061208
  Serious: Yes (Disabling, Other)
  Sender: FDA-Public Use
  Company Number: 2006096084

PATIENT
  Age: 80 Year
  Sex: Female
  Weight: 40.8 kg

DRUGS (4)
  1. METHYLPREDNISOLONE [Suspect]
     Indication: OPTIC NEUROPATHY
     Dosage: 30 MG, ORAL
     Route: 048
     Dates: start: 20040203
  2. SOLU-MEDROL [Suspect]
     Indication: DRUG USE FOR UNKNOWN INDICATION
     Dosage: 1000 MG
     Dates: start: 20040130, end: 20040202
  3. KENACORT-A (TRIAMCINOLONE ACETATE) [Concomitant]
  4. LIPLE (ALPROSTADIL) [Concomitant]

REACTIONS (5)
  - ACTIVATED PARTIAL THROMBOPLASTIN TIME SHORTENED [None]
  - BLINDNESS [None]
  - PROTHROMBIN TIME SHORTENED [None]
  - RETINAL VASCULAR DISORDER [None]
  - THERAPY NON-RESPONDER [None]
